FAERS Safety Report 24731452 (Version 1)
Quarter: 2024Q4

REPORT INFORMATION
  Report Type: Report from Study
  Country: CA (occurrence: CA)
  Receive Date: 20241213
  Receipt Date: 20241213
  Transmission Date: 20250115
  Serious: Yes (Other)
  Sender: ACCORD
  Company Number: None

PATIENT
  Age: 59 Year
  Sex: Male
  Weight: 89 kg

DRUGS (14)
  1. AMLODIPINE BESYLATE [Suspect]
     Active Substance: AMLODIPINE BESYLATE
     Indication: Product used for unknown indication
     Route: 065
  2. ROSUVASTATIN CALCIUM [Suspect]
     Active Substance: ROSUVASTATIN CALCIUM
     Indication: Product used for unknown indication
     Route: 065
  3. METFORMIN HYDROCHLORIDE [Suspect]
     Active Substance: METFORMIN HYDROCHLORIDE
     Indication: Product used for unknown indication
     Dosage: 2 EVERY 1 DAYS
     Route: 065
  4. ZOPICLONE [Suspect]
     Active Substance: ZOPICLONE
     Indication: Product used for unknown indication
     Route: 065
  5. SANDOSTATIN [Suspect]
     Active Substance: OCTREOTIDE ACETATE
     Indication: Carcinoid tumour
     Dosage: 1 EVERY 4 WEEKS
     Route: 030
  6. IMODIUM [Suspect]
     Active Substance: LOPERAMIDE HYDROCHLORIDE
     Indication: Product used for unknown indication
     Route: 065
  7. LINAGLIPTIN [Concomitant]
     Active Substance: LINAGLIPTIN
     Indication: Product used for unknown indication
     Dosage: 1 EVERY 1 DAYS
     Route: 065
  8. ALTACE [Concomitant]
     Active Substance: RAMIPRIL
     Indication: Product used for unknown indication
     Dosage: 2 EVERY 1 DAYS
     Route: 065
  9. GLYBURIDE [Concomitant]
     Active Substance: GLYBURIDE
     Indication: Product used for unknown indication
     Dosage: 2 EVERY 1 DAYS
     Route: 065
  10. HYDROCHLOROTHIAZIDE [Concomitant]
     Active Substance: HYDROCHLOROTHIAZIDE
     Indication: Product used for unknown indication
     Dosage: 1 EVERY 1 DAYS
     Route: 065
  11. LUTETIUM OXODOTREOTIDE LU-177 [Concomitant]
     Active Substance: LUTETIUM OXODOTREOTIDE LU-177
     Indication: Product used for unknown indication
     Route: 065
  12. QUINAPRIL [Concomitant]
     Active Substance: QUINAPRIL
     Indication: Product used for unknown indication
     Route: 065
  13. QUINAPRIL HYDROCHLORIDE [Concomitant]
     Active Substance: QUINAPRIL HYDROCHLORIDE
     Indication: Product used for unknown indication
     Route: 065
  14. AMLODIPINE BESYLATE [Suspect]
     Active Substance: AMLODIPINE BESYLATE
     Indication: Product used for unknown indication
     Route: 065

REACTIONS (28)
  - Arteriosclerosis coronary artery [Recovered/Resolved]
  - Inappropriate schedule of product administration [Recovered/Resolved]
  - Aspartate aminotransferase increased [Recovered/Resolved]
  - Diarrhoea [Recovered/Resolved]
  - Fibrous histiocytoma [Recovered/Resolved]
  - Glycosylated haemoglobin increased [Recovered/Resolved]
  - Haemoglobin decreased [Recovered/Resolved]
  - Haematocrit decreased [Recovered/Resolved]
  - Blood glucose increased [Recovered/Resolved]
  - Nausea [Recovered/Resolved]
  - Neoplasm [Recovered/Resolved]
  - Pruritus [Recovered/Resolved]
  - Red blood cell count decreased [Recovered/Resolved]
  - Syncope [Recovered/Resolved]
  - Blood potassium decreased [Recovered/Resolved]
  - Blood pressure diastolic decreased [Recovered/Resolved]
  - Expired product administered [Recovered/Resolved]
  - Blood mercury abnormal [Recovered/Resolved]
  - Gamma-glutamyltransferase increased [Recovered/Resolved]
  - Vomiting [Recovered/Resolved]
  - Blood pressure systolic increased [Recovered/Resolved]
  - Hepatic neoplasm [Recovered/Resolved]
  - Movement disorder [Recovered/Resolved]
  - Platelet count decreased [Recovered/Resolved]
  - Urticaria [Recovered/Resolved]
  - 5-hydroxyindolacetic acid increased [Recovered/Resolved]
  - Blood follicle stimulating hormone increased [Recovered/Resolved]
  - Low density lipoprotein decreased [Recovered/Resolved]
